FAERS Safety Report 8304299-0 (Version None)
Quarter: 2012Q2

REPORT INFORMATION
  Report Type: 
  Country: None (occurrence: None)
  Receive Date: 20120423
  Receipt Date: 20120423
  Transmission Date: 20120825
  Serious: Yes (Other)
  Sender: FDA-Public Use
  Company Number: None

PATIENT
  Age: 40 Year
  Sex: Female
  Weight: 96.161 kg

DRUGS (1)
  1. LO LOESTRIN FE [Suspect]
     Indication: MENSTRUAL DISORDER
     Dosage: ONE PILL

REACTIONS (1)
  - MENORRHAGIA [None]
